FAERS Safety Report 11079605 (Version 1)
Quarter: 2015Q2

REPORT INFORMATION
  Report Type: Spontaneous
  Country: US (occurrence: US)
  Receive Date: 20150430
  Receipt Date: 20150430
  Transmission Date: 20150821
  Serious: Yes (Hospitalization)
  Sender: FDA-Public Use
  Company Number: US-PFIZER INC-2015148491

PATIENT
  Age: 59 Year
  Sex: Male

DRUGS (4)
  1. LOSARTAN POTASSIUM. [Suspect]
     Active Substance: LOSARTAN POTASSIUM
     Dosage: 50 MG, DAILY
     Route: 048
  2. AMLODIPINE BESILATE [Suspect]
     Active Substance: AMLODIPINE BESYLATE
     Dosage: UNK
  3. BUMEX [Suspect]
     Active Substance: BUMETANIDE
     Dosage: 1 MG, 2X/DAY
  4. BUMEX [Suspect]
     Active Substance: BUMETANIDE
     Dosage: 2 MG, DAILY
     Route: 048

REACTIONS (1)
  - Acute kidney injury [Unknown]
